FAERS Safety Report 8600840-9 (Version None)
Quarter: 2012Q3

REPORT INFORMATION
  Report Type: 
  Country: None (occurrence: None)
  Receive Date: 20120817
  Receipt Date: 20120807
  Transmission Date: 20120928
  Serious: Yes (Other)
  Sender: FDA-Public Use
  Company Number: US-ELI_LILLY_AND_COMPANY-US201207003321

PATIENT
  Sex: Female
  Weight: 53.515 kg

DRUGS (7)
  1. TOPROL-XL [Concomitant]
     Dosage: 100 MG, QD
  2. VITAMIN D [Concomitant]
  3. FORTEO [Suspect]
     Dosage: 20 UG, QD
     Route: 058
     Dates: start: 20110801
  4. PRAVACHOL [Concomitant]
     Dosage: 140 MG, QD
  5. SYNTHROID [Concomitant]
     Dosage: 100 UG, QD
  6. LASIX [Concomitant]
     Dosage: 20 MG, QD
  7. CALCIUM [Concomitant]
     Dosage: 1500 MG, QD

REACTIONS (2)
  - SPINAL PAIN [None]
  - SPINAL FUSION SURGERY [None]
